FAERS Safety Report 21354605 (Version 1)
Quarter: 2022Q3

REPORT INFORMATION
  Report Type: Spontaneous
  Country: US (occurrence: None)
  Receive Date: 20220919
  Receipt Date: 20220919
  Transmission Date: 20221027
  Serious: Yes (Life-Threatening, Hospitalization, Disabling, Other)
  Sender: FDA-Public Use
  Company Number: None

PATIENT
  Age: 41 Year
  Sex: Female
  Weight: 81 kg

DRUGS (16)
  1. NEURONTIN [Suspect]
     Active Substance: GABAPENTIN
     Indication: Pain
     Route: 048
     Dates: start: 20040505
  2. METHOCARBAMOL [Concomitant]
     Active Substance: METHOCARBAMOL
  3. OMEPRAZOLE [Concomitant]
     Active Substance: OMEPRAZOLE
  4. LOSARTAN [Concomitant]
     Active Substance: LOSARTAN
  5. BUPROPION [Concomitant]
     Active Substance: BUPROPION
  6. CARVEDILOL [Concomitant]
     Active Substance: CARVEDILOL
  7. FLUOXETINE [Concomitant]
     Active Substance: FLUOXETINE HYDROCHLORIDE
  8. NIFEDIPINE [Concomitant]
     Active Substance: NIFEDIPINE
  9. LEVOTHYROXINE SODIUM [Concomitant]
     Active Substance: LEVOTHYROXINE SODIUM
  10. TRAMADOL [Concomitant]
     Active Substance: TRAMADOL
  11. VITAMINS [Concomitant]
     Active Substance: VITAMINS
  12. HERBALS\TURMERIC [Concomitant]
     Active Substance: HERBALS\TURMERIC
  13. MAGNESIUM [Concomitant]
     Active Substance: MAGNESIUM
  14. HAIR SKIN AND NAILS SUPPLEMENT [Concomitant]
  15. DIETARY SUPPLEMENT\HERBALS\MILK THISTLE [Concomitant]
     Active Substance: DIETARY SUPPLEMENT\HERBALS\MILK THISTLE
  16. ASHWAGANDHA [Concomitant]

REACTIONS (32)
  - Confusional state [None]
  - Thinking abnormal [None]
  - Dehydration [None]
  - Dry skin [None]
  - Renal failure [None]
  - Balance disorder [None]
  - Gait disturbance [None]
  - Fall [None]
  - Lower limb fracture [None]
  - Upper limb fracture [None]
  - Joint dislocation [None]
  - Eye contusion [None]
  - Amnesia [None]
  - Aggression [None]
  - Diplopia [None]
  - Hallucination [None]
  - Depression [None]
  - Somnambulism [None]
  - Tooth disorder [None]
  - Eating disorder [None]
  - Denture wearer [None]
  - Social problem [None]
  - Withdrawal syndrome [None]
  - Unresponsive to stimuli [None]
  - Pneumonia [None]
  - Pancreatitis [None]
  - Encephalopathy [None]
  - Weight decreased [None]
  - Alopecia [None]
  - Quality of life decreased [None]
  - Asthenia [None]
  - Pain [None]

NARRATIVE: CASE EVENT DATE: 20040505
